FAERS Safety Report 20047904 (Version 7)
Quarter: 2022Q2

REPORT INFORMATION
  Report Type: Other
  Country: BE (occurrence: None)
  Receive Date: 20211109
  Receipt Date: 20220627
  Transmission Date: 20220721
  Serious: Yes (Hospitalization, Other)
  Sender: FDA-Public Use
  Company Number: BE-ROCHE-2947283

PATIENT
  Age: 68 Year
  Sex: Female
  Weight: 82 kg

DRUGS (51)
  1. ATEZOLIZUMAB [Suspect]
     Active Substance: ATEZOLIZUMAB
     Indication: Small cell lung cancer extensive stage
     Dosage: ON 07/JUL/2021, MOST RECENT DOSE 1200 MG OF ATEZOLIZUMAB PRIOR TO NEUTROPENIA.
     Route: 041
     Dates: start: 20200917
  2. ATEZOLIZUMAB [Suspect]
     Active Substance: ATEZOLIZUMAB
     Route: 041
     Dates: start: 20200826
  3. CARBOPLATIN [Suspect]
     Active Substance: CARBOPLATIN
     Indication: Small cell lung cancer extensive stage
     Route: 065
     Dates: start: 20200726
  4. ETOPOSIDE [Suspect]
     Active Substance: ETOPOSIDE
     Indication: Small cell lung cancer extensive stage
     Route: 042
     Dates: start: 20200826
  5. INFLUENZA VIRUS VACCINE [Suspect]
     Active Substance: INFLUENZA VIRUS VACCINE
     Indication: Product used for unknown indication
     Route: 065
     Dates: start: 202011, end: 202011
  6. BISOPROLOL [Concomitant]
     Active Substance: BISOPROLOL
     Dates: start: 2004
  7. BISOPROLOL [Concomitant]
     Active Substance: BISOPROLOL
     Dates: start: 202106
  8. FUROSEMIDE [Concomitant]
     Active Substance: FUROSEMIDE
     Dates: start: 2004
  9. ATORVASTATIN [Concomitant]
     Active Substance: ATORVASTATIN
     Dates: start: 2000
  10. LEVOTHYROXINE [Concomitant]
     Active Substance: LEVOTHYROXINE
     Dates: start: 2005
  11. VARIVENOL [Concomitant]
     Indication: Prophylaxis
     Dates: start: 2017
  12. LORMETAZEPAM [Concomitant]
     Active Substance: LORMETAZEPAM
     Indication: Prophylaxis
     Dates: start: 1992
  13. INDACATEROL [Concomitant]
     Active Substance: INDACATEROL
     Dates: start: 20201029
  14. INDACATEROL [Concomitant]
     Active Substance: INDACATEROL
     Dates: start: 202110
  15. GLYCOPYRRONIUM\INDACATEROL [Concomitant]
     Active Substance: GLYCOPYRRONIUM\INDACATEROL
     Dates: start: 202108, end: 202110
  16. PIPERACILLIN SODIUM\TAZOBACTAM SODIUM [Concomitant]
     Active Substance: PIPERACILLIN SODIUM\TAZOBACTAM SODIUM
     Indication: Prophylaxis
     Dates: start: 20211001, end: 20211005
  17. CARBOPLATIN [Concomitant]
     Active Substance: CARBOPLATIN
  18. DAFLON [Concomitant]
     Dates: start: 20211007
  19. ALIZAPRIDE HYDROCHLORIDE [Concomitant]
     Active Substance: ALIZAPRIDE HYDROCHLORIDE
     Dates: start: 20200827
  20. ETILEFRINE HYDROCHLORIDE [Concomitant]
     Active Substance: ETILEFRINE HYDROCHLORIDE
     Dates: start: 202009
  21. ETILEFRINE HYDROCHLORIDE [Concomitant]
     Active Substance: ETILEFRINE HYDROCHLORIDE
     Dates: start: 20210320
  22. GYNO DAKTARIN [Concomitant]
     Dates: start: 20200930
  23. VOLTAREN [Concomitant]
     Active Substance: DICLOFENAC SODIUM
     Dates: start: 202012
  24. MOVICOL [Concomitant]
     Active Substance: POLYETHYLENE GLYCOL 3350\POTASSIUM CHLORIDE\SODIUM BICARBONATE\SODIUM CHLORIDE
     Dates: start: 20210120
  25. ACETAMINOPHEN [Concomitant]
     Active Substance: ACETAMINOPHEN
     Dates: start: 20211001, end: 20211001
  26. EBASTINE [Concomitant]
     Active Substance: EBASTINE
     Dates: start: 20210324
  27. EBASTINE [Concomitant]
     Active Substance: EBASTINE
     Dates: start: 20210929, end: 20211001
  28. PANTOPRAZOLE [Concomitant]
     Active Substance: PANTOPRAZOLE
     Dates: start: 202104
  29. CHLORHEXIDINE GLUCONATE [Concomitant]
     Active Substance: CHLORHEXIDINE GLUCONATE
     Dates: start: 20210806, end: 202110
  30. CEFUROXIME [Concomitant]
     Active Substance: CEFUROXIME
     Dates: start: 20210826, end: 20210902
  31. ARANESP [Concomitant]
     Active Substance: DARBEPOETIN ALFA
     Dates: start: 20210916, end: 20210916
  32. NITROFURANTOIN [Concomitant]
     Active Substance: NITROFURANTOIN
     Dates: start: 20210917, end: 20210923
  33. MAGNETOP [Concomitant]
     Dates: start: 20210918, end: 202109
  34. DULCOLAX (BISACODYL) [Concomitant]
     Active Substance: BISACODYL
     Dates: start: 20211014
  35. DAFALGAN [Concomitant]
     Active Substance: ACETAMINOPHEN
     Dates: start: 20211017, end: 20211028
  36. CARBOPLATIN [Concomitant]
     Active Substance: CARBOPLATIN
     Indication: Neoplasm malignant
     Dates: start: 20210804, end: 20210915
  37. ETOPOSIDE [Concomitant]
     Active Substance: ETOPOSIDE
     Indication: Neoplasm malignant
     Dates: start: 20210804, end: 20210917
  38. CYCLOPHOSPHAMIDE [Concomitant]
     Active Substance: CYCLOPHOSPHAMIDE
     Dates: start: 20211013, end: 20211103
  39. VINCRISTINE [Concomitant]
     Active Substance: VINCRISTINE
     Dates: start: 20211013, end: 20211103
  40. DOXORUBICIN [Concomitant]
     Active Substance: DOXORUBICIN
     Dates: start: 20211013, end: 20211103
  41. HEXETIDINE [Concomitant]
     Active Substance: HEXETIDINE
     Indication: Mouth ulceration
     Dates: start: 20200828
  42. DEXAMETHASONE [Concomitant]
     Active Substance: DEXAMETHASONE
     Dates: start: 20200917, end: 20200917
  43. DEXAMETHASONE [Concomitant]
     Active Substance: DEXAMETHASONE
     Dates: start: 20200826, end: 20200826
  44. NETUPITANT [Concomitant]
     Active Substance: NETUPITANT
     Dates: start: 20200917, end: 20200917
  45. NETUPITANT [Concomitant]
     Active Substance: NETUPITANT
     Dates: start: 20200826, end: 20200826
  46. PALONOSETRON [Concomitant]
     Active Substance: PALONOSETRON
     Dates: start: 20200917, end: 20200917
  47. PALONOSETRON [Concomitant]
     Active Substance: PALONOSETRON
     Dates: start: 20200826, end: 20200826
  48. HUMAN RED BLOOD CELL [Concomitant]
     Active Substance: HUMAN RED BLOOD CELL
     Dates: start: 20201118, end: 20201118
  49. BISACODYL [Concomitant]
     Active Substance: BISACODYL
     Dates: start: 202009, end: 202009
  50. FOSFOMYCIN TROMETHAMINE [Concomitant]
     Active Substance: FOSFOMYCIN TROMETHAMINE
     Indication: Urinary tract infection
     Dates: start: 20200930, end: 20200930
  51. ASTRAZENECA COVID-19 VACCINE [Concomitant]
     Active Substance: AZD-1222
     Dates: start: 20210318, end: 20210318

REACTIONS (48)
  - Transfusion reaction [Recovered/Resolved]
  - Neutropenia [Not Recovered/Not Resolved]
  - Hypokalaemia [Recovered/Resolved]
  - Hypoalbuminaemia [Recovered/Resolved]
  - Back pain [Recovered/Resolved]
  - Dysgeusia [Not Recovered/Not Resolved]
  - Oral pain [Recovered/Resolved]
  - Aspartate aminotransferase increased [Recovered/Resolved]
  - Pain in jaw [Recovered/Resolved]
  - Hyperkalaemia [Recovered/Resolved]
  - Vaccination site reaction [Recovered/Resolved]
  - Decreased appetite [Recovered/Resolved]
  - Tremor [Not Recovered/Not Resolved]
  - Mouth ulceration [Recovered/Resolved]
  - Weight decreased [Not Recovered/Not Resolved]
  - Decreased appetite [Not Recovered/Not Resolved]
  - Rash [Recovered/Resolved]
  - Asthenia [Not Recovered/Not Resolved]
  - Constipation [Recovered/Resolved]
  - Myalgia [Recovered/Resolved]
  - Dyspnoea [Not Recovered/Not Resolved]
  - Epistaxis [Recovered/Resolved]
  - Nausea [Recovered/Resolved]
  - Blood creatine phosphokinase increased [Recovered/Resolved]
  - Anaemia [Not Recovered/Not Resolved]
  - Hypotension [Not Recovered/Not Resolved]
  - Arthralgia [Not Recovered/Not Resolved]
  - Alopecia [Not Recovered/Not Resolved]
  - Vulvovaginal mycotic infection [Not Recovered/Not Resolved]
  - Polyneuropathy [Not Recovered/Not Resolved]
  - Dysgeusia [Recovered/Resolved]
  - Purpura [Not Recovered/Not Resolved]
  - Hypomagnesaemia [Not Recovered/Not Resolved]
  - Hyperuricaemia [Recovered/Resolved]
  - Thrombocytopenia [Recovered/Resolved]
  - Cystitis [Recovered/Resolved]
  - Platelet count decreased [Not Recovered/Not Resolved]
  - Weight decreased [Not Recovered/Not Resolved]
  - Urinary tract infection [Recovered/Resolved]
  - Back pain [Not Recovered/Not Resolved]
  - Hypotension [Not Recovered/Not Resolved]
  - Contusion [Recovered/Resolved]
  - Febrile neutropenia [Not Recovered/Not Resolved]
  - Anaemia [Recovered/Resolved]
  - Dyspnoea [Not Recovered/Not Resolved]
  - Cystitis [Recovered/Resolved]
  - Pollakiuria [Recovered/Resolved]
  - Hypoacusis [Not Recovered/Not Resolved]

NARRATIVE: CASE EVENT DATE: 20200901
